FAERS Safety Report 8008221-6 (Version None)
Quarter: 2011Q4

REPORT INFORMATION
  Report Type: 
  Country: None (occurrence: None)
  Receive Date: 20111227
  Receipt Date: 20111222
  Transmission Date: 20120403
  Serious: Yes (Death)
  Sender: FDA-Public Use
  Company Number: US-ROCHE-1021311

PATIENT
  Sex: Female
  Weight: 96.702 kg

DRUGS (8)
  1. METHOTREXATE [Concomitant]
  2. DYRENIUM [Concomitant]
  3. ACTEMRA [Suspect]
     Indication: RHEUMATOID ARTHRITIS
     Dosage: LAST DOSE PRIOR TO SAE: 22/AUG/2011, 24/OCT/2011
     Route: 042
     Dates: start: 20110623
  4. MOTRIN [Concomitant]
  5. PREDNISONE [Concomitant]
  6. FOLIC ACID [Concomitant]
  7. LEXAPRO [Concomitant]
  8. MAXIDEX [Concomitant]

REACTIONS (1)
  - DEATH [None]
